FAERS Safety Report 22517426 (Version 1)
Quarter: 2023Q2

REPORT INFORMATION
  Report Type: Spontaneous
  Country: PL (occurrence: PL)
  Receive Date: 20230603
  Receipt Date: 20230603
  Transmission Date: 20230721
  Serious: Yes (Other)
  Sender: FDA-Public Use
  Company Number: PL-Accord-360705

PATIENT
  Age: 60 Year
  Sex: Female

DRUGS (7)
  1. LETROZOLE [Suspect]
     Active Substance: LETROZOLE
     Indication: HER2 negative breast cancer
     Dosage: 2.5 MG DAILY
     Dates: start: 202012
  2. ABEMACICLIB [Suspect]
     Active Substance: ABEMACICLIB
     Indication: HER2 negative breast cancer
     Dosage: DAILY IN A DAILY DOSE OF 300 MG IN TWO DIVIDED DOSES OF 150 MG
     Dates: start: 202012
  3. ZOLEDRONIC ACID [Concomitant]
     Active Substance: ZOLEDRONIC ACID
  4. ABEMACICLIB [Suspect]
     Active Substance: ABEMACICLIB
     Indication: Metastases to liver
     Dosage: DAILY IN A DAILY DOSE OF 300 MG IN TWO DIVIDED DOSES OF 150 MG
     Dates: start: 202012
  5. ABEMACICLIB [Suspect]
     Active Substance: ABEMACICLIB
     Indication: Metastases to bone
     Dosage: DAILY IN A DAILY DOSE OF 300 MG IN TWO DIVIDED DOSES OF 150 MG
     Dates: start: 202012
  6. LETROZOLE [Suspect]
     Active Substance: LETROZOLE
     Indication: Metastases to liver
     Dosage: 2.5 MG DAILY
     Dates: start: 202012
  7. LETROZOLE [Suspect]
     Active Substance: LETROZOLE
     Indication: Metastases to bone
     Dosage: 2.5 MG DAILY
     Dates: start: 202012

REACTIONS (3)
  - Anaemia [Recovered/Resolved]
  - Neutropenia [Recovered/Resolved]
  - Creatinine renal clearance decreased [Recovered/Resolved]
